FAERS Safety Report 4883772-1 (Version None)
Quarter: 2006Q1

REPORT INFORMATION
  Report Type: 
  Country: None (occurrence: None)
  Receive Date: 20060113
  Receipt Date: 20051226
  Transmission Date: 20060701
  Serious: Yes (Hospitalization)
  Sender: FDA-Public Use
  Company Number: 6019480

PATIENT
  Age: 56 Year
  Sex: Male

DRUGS (21)
  1. LEVOTHYROX 50 (TABLET) (LEVOTHYROXINE SODIUM) [Suspect]
     Dosage: 50 MCG (50 MCG, 1 IN 1 D), ORAL
     Route: 048
     Dates: start: 20051122, end: 20051125
  2. HYDROCORTISONE [Suspect]
     Dosage: 3 DOSAGE FORMS (3 DOSAGE FORMS, 1 D), ORAL
     Route: 048
     Dates: start: 20051122, end: 20051125
  3. CELEBREX [Suspect]
     Dosage: 1 DOSAGE FORMS (1 DOSAGE FORMS, 1 IN 1 D), ORAL
     Route: 048
     Dates: start: 20051115, end: 20051126
  4. PANTESTONE (CAPSULE) (TESTOSTERONE UNDECYLENATE) [Suspect]
     Dosage: 2 DOSAGE FORMS (2 DOSAGE FORMS, 1 D), ORAL
     Route: 048
     Dates: start: 20051122, end: 20051125
  5. VOLTAREN [Concomitant]
  6. ALPRAZOLAM [Concomitant]
  7. TERCIAN (CYAMEMAZINE) [Concomitant]
  8. EFFEXOR [Concomitant]
  9. PLAVIX (TABLET) (CLOPIDOGREL SULFATE) [Concomitant]
  10. IKARAN (DIHYDROERGOTAMINE MESILATE) [Concomitant]
  11. ATORVASTATIN CALCIUM [Concomitant]
  12. DI-ANTALVIC (CAPSULE) (PARACETAMOL, DEXTROPROPOXYPHENE) [Concomitant]
  13. SULFARLEM (TABLET) (ANETHOLE TRITHIONE) [Concomitant]
  14. LANZOR (CAPSULE) (LANSOPRAZOLE) [Concomitant]
  15. BEDELIX (ORAL POWDER) (MONTMORILLONITE) [Concomitant]
  16. TRIMEBUTINE (TABLET) (TRIMEBUTINE) [Concomitant]
  17. TAMSULOSIN HCL [Concomitant]
  18. COSOPT (EYE DROPS, SOLUTION) TIMOLOL MALEATE, DORZOLAMIDE HYDROCHLORID [Concomitant]
  19. XALATAN (EYE DROPS, SOLUTION) (LATANOPROST) [Concomitant]
  20. LARMABAK [Concomitant]
  21. .. [Concomitant]

REACTIONS (1)
  - HYPERSENSITIVITY [None]
